FAERS Safety Report 4456284-7 (Version None)
Quarter: 2004Q3

REPORT INFORMATION
  Report Type: 
  Country: None (occurrence: None)
  Receive Date: 20040922
  Receipt Date: 20040624
  Transmission Date: 20050211
  Serious: Yes (Other)
  Sender: FDA-Public Use
  Company Number: BE-MERCK-0406BEL00035

PATIENT
  Age: 72 Year
  Sex: Female

DRUGS (6)
  1. CELECOXIB [Concomitant]
     Route: 048
     Dates: end: 20040419
  2. ENOXAPARIN SODIUM [Concomitant]
     Indication: PROPHYLAXIS
     Route: 058
     Dates: start: 20040420, end: 20040426
  3. METHYLPREDNISOLONE [Concomitant]
     Indication: CHONDROCALCINOSIS
     Route: 048
     Dates: start: 20040424, end: 20040430
  4. VIOXX [Suspect]
     Indication: OSTEOARTHRITIS
     Route: 048
     Dates: start: 20040401, end: 20040427
  5. TRAMADOL HYDROCHLORIDE [Concomitant]
     Route: 048
     Dates: start: 20040421
  6. ZOLPIDEM TARTRATE [Concomitant]
     Route: 048
     Dates: start: 20040422

REACTIONS (1)
  - VASCULAR PURPURA [None]
